FAERS Safety Report 8461221-4 (Version None)
Quarter: 2012Q2

REPORT INFORMATION
  Report Type: 
  Country: None (occurrence: None)
  Receive Date: 20120619
  Receipt Date: 20120619
  Transmission Date: 20120825
  Serious: No
  Sender: FDA-Public Use
  Company Number: None

PATIENT
  Age: 16 Year
  Sex: Female
  Weight: 56.6996 kg

DRUGS (2)
  1. DEXILANT [Suspect]
     Indication: ULCER
     Dates: start: 20111020, end: 20120518
  2. DEXILANT [Suspect]
     Indication: GASTROOESOPHAGEAL REFLUX DISEASE
     Dates: start: 20111020, end: 20120518

REACTIONS (7)
  - DIZZINESS [None]
  - PAIN [None]
  - BACK PAIN [None]
  - MUSCULOSKELETAL CHEST PAIN [None]
  - CHEST PAIN [None]
  - ASTHENIA [None]
  - DYSPNOEA [None]
